FAERS Safety Report 4504121-4 (Version None)
Quarter: 2004Q4

REPORT INFORMATION
  Report Type: 
  Country: None (occurrence: None)
  Receive Date: 20041118
  Receipt Date: 20041108
  Transmission Date: 20050328
  Serious: Yes (Death, Other)
  Sender: FDA-Public Use
  Company Number: FR-ABBOTT-04P-056-0280055-00

PATIENT
  Sex: Female

DRUGS (3)
  1. DEPAKENE [Suspect]
     Indication: DRUG USE FOR UNKNOWN INDICATION
  2. TEMOZOLOMIDE [Interacting]
     Indication: GLIOMA
     Route: 048
  3. RADIATION THERAPY [Suspect]
     Indication: GLIOMA

REACTIONS (3)
  - DRUG INTERACTION [None]
  - GLIOMA [None]
  - THROMBOCYTOPENIA [None]
